FAERS Safety Report 9529784 (Version 2)
Quarter: 2013Q3

REPORT INFORMATION
  Report Type: Spontaneous
  Country: US (occurrence: US)
  Receive Date: 20130917
  Receipt Date: 20130919
  Transmission Date: 20140515
  Serious: Yes (Hospitalization, Other)
  Sender: FDA-Public Use
  Company Number: US-GILEAD-2013-0083468

PATIENT
  Age: 50 Year
  Sex: Male

DRUGS (2)
  1. LETAIRIS [Suspect]
     Indication: PORTOPULMONARY HYPERTENSION
     Dosage: 10 MG, QD
     Route: 048
     Dates: start: 20130620
  2. LASIX                              /00032601/ [Concomitant]

REACTIONS (4)
  - Catheterisation cardiac [Recovered/Resolved]
  - Systolic hypertension [Unknown]
  - Atrial fibrillation [Recovered/Resolved]
  - Fluid overload [Unknown]
